FAERS Safety Report 7003326-0 (Version None)
Quarter: 2010Q3

REPORT INFORMATION
  Report Type: 
  Country: None (occurrence: None)
  Receive Date: 20100920
  Receipt Date: 20100804
  Transmission Date: 20110219
  Serious: Yes (Other)
  Sender: FDA-Public Use
  Company Number: A0874999A

PATIENT

DRUGS (1)
  1. LAMICTAL XR [Suspect]
     Indication: PARTIAL SEIZURES

REACTIONS (1)
  - MYOCLONIC EPILEPSY [None]
